FAERS Safety Report 19815813 (Version 2)
Quarter: 2021Q3

REPORT INFORMATION
  Report Type: Spontaneous
  Country: FR (occurrence: FR)
  Receive Date: 20210909
  Receipt Date: 20210922
  Transmission Date: 20211014
  Serious: Yes (Other)
  Sender: FDA-Public Use
  Company Number: FR-PFIZER INC-202101121467

PATIENT
  Age: 44 Year
  Sex: Female

DRUGS (9)
  1. PACLITAXEL. [Suspect]
     Active Substance: PACLITAXEL
     Dosage: 150 MG, WEEKLY (COURSE 1 TO COURSE 5)
     Route: 041
     Dates: start: 20210601, end: 20210629
  2. PACLITAXEL. [Suspect]
     Active Substance: PACLITAXEL
     Dosage: 90 MG, WEEKLY, COURSE 10 (DOSAGE REDUCED AT 40%)
     Route: 041
     Dates: start: 20210803, end: 20210803
  3. PACLITAXEL FRESENIUS KABI [Suspect]
     Active Substance: PACLITAXEL
     Indication: BREAST CANCER FEMALE
     Dosage: 100MG/16.7ML
     Dates: start: 20210601
  4. CYTARABINE. [Suspect]
     Active Substance: CYTARABINE
     Indication: BREAST CANCER FEMALE
     Dosage: 4 COURSES
  5. PACLITAXEL. [Suspect]
     Active Substance: PACLITAXEL
     Dosage: 150 MG, WEEKLY, (COURSE 6 AND COURSE 7)
     Route: 041
     Dates: start: 20210706, end: 20210713
  6. PACLITAXEL. [Suspect]
     Active Substance: PACLITAXEL
     Dosage: 150 MG, WEEKLY COURSE 5
     Route: 041
     Dates: start: 20210629
  7. PACLITAXEL. [Suspect]
     Active Substance: PACLITAXEL
     Dosage: COURSE 8 CANCELLED
     Route: 041
     Dates: start: 20210720
  8. PACLITAXEL. [Suspect]
     Active Substance: PACLITAXEL
     Dosage: 120 MG, WEEKLY, COURSE 9 (DOSAGE REDUCED OF 20 PERCENT)
     Route: 041
     Dates: start: 20210727, end: 20210727
  9. EPIRUBICIN HCL [Suspect]
     Active Substance: EPIRUBICIN HYDROCHLORIDE
     Indication: BREAST CANCER FEMALE
     Dosage: 4 COURSES

REACTIONS (13)
  - Muscle spasms [Unknown]
  - Pain [Unknown]
  - Sensory loss [Unknown]
  - Sensitive skin [Unknown]
  - Oedema peripheral [Unknown]
  - Neuropathy peripheral [Not Recovered/Not Resolved]
  - Weight increased [Unknown]
  - Palmar-plantar erythrodysaesthesia syndrome [Unknown]
  - Skin lesion [Unknown]
  - Paraesthesia [Unknown]
  - Tinnitus [Unknown]
  - Musculoskeletal stiffness [Unknown]
  - Impaired healing [Unknown]

NARRATIVE: CASE EVENT DATE: 20210720
